FAERS Safety Report 14590817 (Version 1)
Quarter: 2018Q1

REPORT INFORMATION
  Report Type: Report from Study
  Country: US (occurrence: US)
  Receive Date: 20180302
  Receipt Date: 20180302
  Transmission Date: 20180509
  Serious: Yes (Death, Other)
  Sender: FDA-Public Use
  Company Number: US-OTSUKA-2018_005330

PATIENT
  Age: 49 Year
  Sex: Male

DRUGS (2)
  1. TOLVAPTAN [Suspect]
     Active Substance: TOLVAPTAN
     Indication: BLOOD OSMOLARITY DECREASED
     Dosage: 15 MG, QD (ONCE DAILY)
     Route: 065
     Dates: start: 201802
  2. TOLVAPTAN [Suspect]
     Active Substance: TOLVAPTAN
     Indication: HYPONATRAEMIA

REACTIONS (2)
  - Death [Fatal]
  - Cardio-respiratory arrest [Not Recovered/Not Resolved]

NARRATIVE: CASE EVENT DATE: 20180228
